FAERS Safety Report 6241628-6 (Version None)
Quarter: 2009Q2

REPORT INFORMATION
  Report Type: 
  Country: None (occurrence: None)
  Receive Date: 20090623
  Receipt Date: 20050113
  Transmission Date: 20091009
  Serious: Yes (Life-Threatening, Hospitalization)
  Sender: FDA-Public Use
  Company Number: CZ-ROCHE-411469

PATIENT
  Sex: Male
  Weight: 45.5 kg

DRUGS (25)
  1. DACLIZUMAB [Suspect]
     Route: 042
     Dates: start: 20041124
  2. DACLIZUMAB [Suspect]
     Route: 042
     Dates: start: 20041209
  3. DACLIZUMAB [Suspect]
     Dosage: FOUR DOSES
     Route: 042
     Dates: start: 20041221, end: 20050120
  4. MYCOPHENOLATE MOFETIL [Suspect]
     Route: 048
     Dates: start: 20041124
  5. MYCOPHENOLATE MOFETIL [Suspect]
     Route: 048
     Dates: start: 20041129, end: 20041130
  6. MYCOPHENOLATE MOFETIL [Suspect]
     Route: 048
     Dates: start: 20041204
  7. SIROLIMUS [Suspect]
     Dosage: DRUG: SIROLIMUSUM
     Route: 048
     Dates: start: 20041124
  8. SIROLIMUS [Suspect]
     Route: 048
     Dates: start: 20041127
  9. SIROLIMUS [Suspect]
     Route: 048
     Dates: start: 20041201
  10. SIROLIMUS [Suspect]
     Route: 048
     Dates: start: 20050617
  11. METHYLPREDNISOLONE SODIUM SUCCINATE [Suspect]
     Route: 042
     Dates: start: 20041124, end: 20041126
  12. PREDNISONUM [Suspect]
     Route: 048
     Dates: start: 20041126
  13. PREDNISONUM [Suspect]
     Route: 048
     Dates: start: 20041207
  14. PREDNISONUM [Suspect]
     Route: 048
     Dates: start: 20041222
  15. PREDNISONUM [Suspect]
     Route: 048
     Dates: start: 20050225
  16. PREDNISONUM [Suspect]
     Route: 048
     Dates: end: 20051121
  17. OMEPRAZOL [Concomitant]
     Dates: start: 20041124, end: 20051121
  18. METOPROLOL TARTRATE [Concomitant]
     Dosage: DRUG: METOPROLOLI TARTRAS
     Route: 048
     Dates: start: 20041126
  19. AMLODIPINE BESYLATE [Concomitant]
     Dosage: DRUG: AMLODIPINE BESILAS
     Route: 048
     Dates: start: 20041126
  20. AMLODIPINE BESYLATE [Concomitant]
     Route: 048
     Dates: start: 20041130
  21. AMLODIPINE BESYLATE [Concomitant]
     Route: 048
     Dates: start: 20040908
  22. CIPROFLOXACINUM [Concomitant]
     Route: 042
     Dates: start: 20041124, end: 20041128
  23. INSULIN HUMAN (BIOSYNTHETIC) [Concomitant]
     Dosage: DRUG: INSULINIM HUMANUM BIOSYNTHETICUM
     Route: 058
     Dates: start: 20041128
  24. SULFAMETHOXAZOLE AND TRIMETHOPRIM [Concomitant]
     Route: 048
     Dates: start: 20041209
  25. SULFAMETHOXAZOLE AND TRIMETHOPRIM [Concomitant]
     Route: 048
     Dates: start: 20050617

REACTIONS (2)
  - PNEUMONIA [None]
  - TONGUE NEOPLASM MALIGNANT STAGE UNSPECIFIED [None]
